FAERS Safety Report 13019991 (Version 1)
Quarter: 2016Q4

REPORT INFORMATION
  Report Type: Spontaneous
  Country: US (occurrence: US)
  Receive Date: 20161212
  Receipt Date: 20161212
  Transmission Date: 20170207
  Serious: No
  Sender: FDA-Public Use
  Company Number: US-ROCHE-1831086

PATIENT
  Sex: Male

DRUGS (1)
  1. ACTEMRA [Suspect]
     Active Substance: TOCILIZUMAB
     Indication: PRODUCT USED FOR UNKNOWN INDICATION
     Dosage: OTHER LONG TERM (CURRENT) DRUG THERAPY
     Route: 058
     Dates: start: 20160620, end: 20160913

REACTIONS (2)
  - No adverse event [Unknown]
  - Drug ineffective [Unknown]
